FAERS Safety Report 13864523 (Version 1)
Quarter: 2017Q3

REPORT INFORMATION
  Report Type: Spontaneous
  Country: US (occurrence: US)
  Receive Date: 20170812
  Receipt Date: 20170812
  Transmission Date: 20171127
  Serious: Yes (Other)
  Sender: FDA-Public Use
  Company Number: None

PATIENT
  Age: 41 Year
  Sex: Female
  Weight: 92.25 kg

DRUGS (11)
  1. VITAMIN B12 [Concomitant]
     Active Substance: CYANOCOBALAMIN
  2. VITAMIN C [Concomitant]
     Active Substance: ASCORBIC ACID
  3. ICY HOT [Suspect]
     Active Substance: MENTHOL\METHYL SALICYLATE
     Indication: NECK PAIN
     Route: 061
     Dates: start: 20170806, end: 20170810
  4. COPAXONE [Concomitant]
     Active Substance: GLATIRAMER ACETATE
  5. DULOXETINE. [Concomitant]
     Active Substance: DULOXETINE
  6. BACLAFEN [Concomitant]
  7. LYRICA [Concomitant]
     Active Substance: PREGABALIN
  8. AMITRIPTILYN [Concomitant]
  9. WOMEN^S DAILY [Concomitant]
  10. LO LOESTRA FE [Concomitant]
  11. CINNAMON. [Concomitant]
     Active Substance: CINNAMON

REACTIONS (4)
  - Thermal burn [None]
  - Skin exfoliation [None]
  - Scab [None]
  - Pain [None]

NARRATIVE: CASE EVENT DATE: 20170810
